FAERS Safety Report 5464077-7 (Version None)
Quarter: 2007Q3

REPORT INFORMATION
  Report Type: 
  Country: None (occurrence: None)
  Receive Date: 20070921
  Receipt Date: 20070919
  Transmission Date: 20080115
  Serious: Yes (Death, Other)
  Sender: FDA-Public Use
  Company Number: GB-BRISTOL-MYERS SQUIBB COMPANY-13910666

PATIENT

DRUGS (1)
  1. AMPHOTERICIN B [Suspect]

REACTIONS (2)
  - DEATH [None]
  - MEDICATION ERROR [None]
